FAERS Safety Report 17045954 (Version 1)
Quarter: 2019Q4

REPORT INFORMATION
  Report Type: Spontaneous
  Country: US (occurrence: US)
  Receive Date: 20191119
  Receipt Date: 20191119
  Transmission Date: 20200122
  Serious: No
  Sender: FDA-Public Use
  Company Number: US-LUPIN PHARMACEUTICALS INC.-2019-03950

PATIENT
  Age: 62 Year
  Sex: Female
  Weight: 76 kg

DRUGS (2)
  1. LISINOPRIL AND HYDROCHLOROTHIAZIDE [Suspect]
     Active Substance: HYDROCHLOROTHIAZIDE\LISINOPRIL
     Dosage: 1 DOSAGE FORM, QD (20 MG/12.5 MG)
     Route: 048
     Dates: start: 20190617
  2. LISINOPRIL AND HYDROCHLOROTHIAZIDE [Suspect]
     Active Substance: HYDROCHLOROTHIAZIDE\LISINOPRIL
     Indication: HYPERTENSION
     Dosage: 2 DOSAGE FORM, QD
     Route: 048
     Dates: start: 20190613

REACTIONS (4)
  - Ocular hyperaemia [Unknown]
  - Eye pain [Recovering/Resolving]
  - Swelling of eyelid [Unknown]
  - Eye swelling [Unknown]

NARRATIVE: CASE EVENT DATE: 20190613
